FAERS Safety Report 7756715-0 (Version None)
Quarter: 2011Q3

REPORT INFORMATION
  Report Type: 
  Country: None (occurrence: None)
  Receive Date: 20110915
  Receipt Date: 20110915
  Transmission Date: 20111222
  Serious: No
  Sender: FDA-Public Use
  Company Number: None

PATIENT
  Sex: Female

DRUGS (1)
  1. SUDAFED 12 HOUR [Suspect]
     Indication: EAR PAIN
     Dosage: ORALLY
     Route: 048

REACTIONS (3)
  - PALPITATIONS [None]
  - EAR PAIN [None]
  - FEELING JITTERY [None]
